FAERS Safety Report 5472424-5 (Version None)
Quarter: 2007Q4

REPORT INFORMATION
  Report Type: 
  Country: None (occurrence: None)
  Receive Date: 20071001
  Receipt Date: 20070921
  Transmission Date: 20080405
  Serious: Yes (Other)
  Sender: FDA-Public Use
  Company Number: DEWYE267005SEP07

PATIENT
  Sex: Male
  Weight: 100 kg

DRUGS (11)
  1. TYGACIL [Suspect]
     Indication: PERITONITIS
     Route: 042
     Dates: start: 20070708, end: 20070708
  2. TYGACIL [Suspect]
     Route: 042
     Dates: start: 20070709, end: 20070717
  3. METOPROLOL SUCCINATE [Concomitant]
     Indication: CARDIOVASCULAR DISORDER
     Dosage: UNKNOWN
  4. MCP-RATIOPHARM [Concomitant]
     Dosage: UNKNOWN
  5. DOBUTAMINE HCL [Concomitant]
     Indication: CARDIOVASCULAR DISORDER
     Dosage: UNKNOWN
  6. FUROSEMIDE [Concomitant]
     Dosage: UNKNOWN
  7. HUMALOG PEN [Concomitant]
     Dosage: UNKNOWN
  8. ACC [Concomitant]
     Dosage: UNKNOWN
  9. THEOPHYLLINE [Concomitant]
     Dosage: UNKNOWN
  10. ENOXAPARIN SODIUM [Concomitant]
     Indication: COAGULOPATHY
     Dosage: UNKNOWN
  11. PANTOPRAZOLE SODIUM [Concomitant]
     Dosage: UNKNOWN

REACTIONS (4)
  - ALANINE AMINOTRANSFERASE INCREASED [None]
  - ASPARTATE AMINOTRANSFERASE INCREASED [None]
  - CHOLESTASIS [None]
  - GAMMA-GLUTAMYLTRANSFERASE INCREASED [None]
